FAERS Safety Report 5744140-3 (Version None)
Quarter: 2008Q2

REPORT INFORMATION
  Report Type: 
  Country: None (occurrence: None)
  Receive Date: 20080520
  Receipt Date: 20080516
  Transmission Date: 20081010
  Serious: Yes (Death)
  Sender: FDA-Public Use
  Company Number: B0521009A

PATIENT
  Age: 72 Year
  Sex: Female

DRUGS (5)
  1. SERETIDE [Suspect]
     Dosage: 2PUFF TWICE PER DAY
     Route: 055
  2. UNKNOWN DRUG [Concomitant]
  3. UNKNOWN DRUG [Concomitant]
     Route: 048
  4. FLEXPEN [Concomitant]
  5. UNKNOWN DRUG [Concomitant]
     Dosage: 1TAB PER DAY
     Route: 048

REACTIONS (6)
  - ANXIETY [None]
  - CHEST PAIN [None]
  - DEATH [None]
  - MYOCARDIAL INFARCTION [None]
  - PNEUMONIA [None]
  - RENAL FAILURE ACUTE [None]
